FAERS Safety Report 5918045-9 (Version None)
Quarter: 2008Q4

REPORT INFORMATION
  Report Type: 
  Country: None (occurrence: None)
  Receive Date: 20081014
  Receipt Date: 20081006
  Transmission Date: 20090506
  Serious: Yes (Death, Hospitalization)
  Sender: FDA-Public Use
  Company Number: IN-PFIZER INC-2008070182

PATIENT
  Sex: Male
  Weight: 60 kg

DRUGS (10)
  1. IRINOTECAN HCL [Suspect]
     Indication: COLORECTAL CANCER METASTATIC
     Route: 042
     Dates: start: 20080807, end: 20080807
  2. BLINDED SU11248 (SU011248) [Suspect]
     Indication: COLORECTAL CANCER METASTATIC
     Route: 048
     Dates: start: 20080807
  3. CALCIUM FOLINATE [Suspect]
     Indication: COLORECTAL CANCER METASTATIC
     Route: 042
     Dates: start: 20080807, end: 20080807
  4. FLUOROURACIL [Suspect]
     Indication: COLORECTAL CANCER METASTATIC
     Route: 042
     Dates: start: 20080807, end: 20080807
  5. MOPADAY [Concomitant]
     Route: 048
     Dates: start: 20080805, end: 20080815
  6. TRYPTOMER [Concomitant]
     Route: 048
     Dates: start: 20080702, end: 20080814
  7. MEBEVERINE [Concomitant]
     Route: 048
     Dates: start: 20080702, end: 20080807
  8. OMEPRAZOLE [Concomitant]
     Route: 048
     Dates: start: 20080702, end: 20080814
  9. VOVERAN - SLOW RELEASE [Concomitant]
     Route: 048
     Dates: start: 20080702, end: 20080814
  10. DIAZEPAM [Concomitant]
     Route: 048
     Dates: start: 20080702, end: 20080814

REACTIONS (14)
  - ANAEMIA [None]
  - ASCITES [None]
  - ASTHENIA [None]
  - BLOOD CREATININE INCREASED [None]
  - DEHYDRATION [None]
  - DIARRHOEA [None]
  - HAEMATOTOXICITY [None]
  - HYPOPHAGIA [None]
  - INTESTINAL OBSTRUCTION [None]
  - NAUSEA [None]
  - NEUTROPENIA [None]
  - RENAL FAILURE [None]
  - VOMITING [None]
  - WHITE BLOOD CELL COUNT DECREASED [None]
